FAERS Safety Report 5285020-X (Version None)
Quarter: 2007Q1

REPORT INFORMATION
  Report Type: 
  Country: None (occurrence: None)
  Receive Date: 20061229
  Receipt Date: 20060821
  Transmission Date: 20070707
  Serious: Yes (Other)
  Sender: FDA-Public Use
  Company Number: 2006UW17248

PATIENT
  Age: 59 Year
  Sex: Male

DRUGS (1)
  1. CRESTOR [Suspect]

REACTIONS (1)
  - MUSCLE CONTRACTIONS INVOLUNTARY [None]
